FAERS Safety Report 10265642 (Version 1)
Quarter: 2014Q2

REPORT INFORMATION
  Report Type: Spontaneous
  Country: TN (occurrence: TN)
  Receive Date: 20140627
  Receipt Date: 20140627
  Transmission Date: 20141212
  Serious: Yes (Other)
  Sender: FDA-Public Use
  Company Number: TN-UCBSA-2014003390

PATIENT
  Age: 50 Year
  Sex: Female

DRUGS (6)
  1. KEPPRA [Suspect]
     Indication: EPILEPSY
     Dosage: UNK
  2. CELECOXIB [Suspect]
     Dosage: UNK
  3. VALPROATE [Suspect]
     Dosage: UNK
  4. PHENOBARBITAL [Suspect]
     Dosage: UNK
  5. ALPRAZOLAM [Concomitant]
     Indication: EPILEPSY
  6. CARBAMAZEPINE [Concomitant]
     Indication: EPILEPSY

REACTIONS (3)
  - Status epilepticus [Recovered/Resolved]
  - Cardio-respiratory arrest [Unknown]
  - Drug reaction with eosinophilia and systemic symptoms [Unknown]
